FAERS Safety Report 9366819 (Version 2)
Quarter: 2013Q3

REPORT INFORMATION
  Report Type: Spontaneous
  Country: FR (occurrence: FR)
  Receive Date: 20130625
  Receipt Date: 20130909
  Transmission Date: 20140515
  Serious: No
  Sender: FDA-Public Use
  Company Number: FR-TEVA-415002ISR

PATIENT
  Sex: Female
  Weight: 54 kg

DRUGS (7)
  1. FUROSEMIDE TEVA 40MG [Suspect]
     Dosage: 40 MILLIGRAM DAILY;
     Dates: end: 20130608
  2. TAHOR 20MG [Concomitant]
  3. KARDEGIC 75MG [Concomitant]
  4. OMEPRAZOLE 20MG [Concomitant]
  5. MONOTILDIEM 120MG [Concomitant]
  6. PAROXETINE 5MG [Concomitant]
  7. SERETIDE [Concomitant]

REACTIONS (2)
  - Somnolence [Recovered/Resolved]
  - Constipation [Recovered/Resolved]
